FAERS Safety Report 6984552-3 (Version None)
Quarter: 2010Q3

REPORT INFORMATION
  Report Type: 
  Country: None (occurrence: None)
  Receive Date: 20100915
  Receipt Date: 20100908
  Transmission Date: 20110219
  Serious: Yes (Other)
  Sender: FDA-Public Use
  Company Number: GB-PFIZER INC-2010113830

PATIENT
  Age: 73 Year
  Sex: Male
  Weight: 78.5 kg

DRUGS (5)
  1. CABERGOLINE [Suspect]
     Indication: PROLACTINOMA
     Dosage: 500 UG, WEEKLY
     Route: 048
     Dates: start: 20100614
  2. AMLODIPINE [Concomitant]
     Dosage: UNK
  3. ATORVASTATIN [Concomitant]
     Dosage: UNK
  4. EZETIMIBE [Concomitant]
     Dosage: UNK
  5. RABEPRAZOLE [Concomitant]
     Dosage: UNK

REACTIONS (2)
  - FATIGUE [None]
  - LEUKOPENIA [None]
